FAERS Safety Report 15362640 (Version 1)
Quarter: 2018Q3

REPORT INFORMATION
  Report Type: Spontaneous
  Country: FR (occurrence: FR)
  Receive Date: 20180907
  Receipt Date: 20180907
  Transmission Date: 20181010
  Serious: Yes (Hospitalization)
  Sender: FDA-Public Use
  Company Number: PHHY2018FR088699

PATIENT
  Age: 41 Year
  Sex: Female

DRUGS (4)
  1. AMOXICILLIN. [Suspect]
     Active Substance: AMOXICILLIN
     Indication: BRONCHITIS
     Dosage: 2 G, QD
     Route: 048
     Dates: start: 20180124
  2. COUMADINE [Interacting]
     Active Substance: WARFARIN SODIUM
     Dosage: 9 MG, QD
     Route: 048
     Dates: start: 20180126
  3. AMOXICILLIN. [Interacting]
     Active Substance: AMOXICILLIN
     Dosage: 2 G, QD
     Route: 048
     Dates: start: 20180131
  4. COUMADINE [Interacting]
     Active Substance: WARFARIN SODIUM
     Indication: ANTIPHOSPHOLIPID SYNDROME
     Dosage: 9 MG, QD
     Route: 048
     Dates: start: 20131211

REACTIONS (3)
  - International normalised ratio increased [Recovered/Resolved]
  - Ecchymosis [Recovered/Resolved]
  - Haematoma [Recovered/Resolved]

NARRATIVE: CASE EVENT DATE: 20180126
